FAERS Safety Report 13059213 (Version 1)
Quarter: 2016Q4

REPORT INFORMATION
  Report Type: Spontaneous
  Country: TR (occurrence: TR)
  Receive Date: 20161223
  Receipt Date: 20161223
  Transmission Date: 20170207
  Serious: Yes (Other)
  Sender: FDA-Public Use
  Company Number: ALCN2016TR008800

PATIENT
  Age: 36 Year
  Sex: Male

DRUGS (1)
  1. ALCAINE [Suspect]
     Active Substance: PROPARACAINE HYDROCHLORIDE
     Indication: EYE PAIN
     Dosage: UNK
     Route: 047

REACTIONS (9)
  - Anterior chamber cell [Recovering/Resolving]
  - Corneal erosion [Recovering/Resolving]
  - Drug abuse [Unknown]
  - Eye pain [Recovering/Resolving]
  - Visual acuity reduced [Unknown]
  - Corneal disorder [Recovering/Resolving]
  - Keratopathy [Recovering/Resolving]
  - Corneal infiltrates [Recovering/Resolving]
  - Corneal oedema [Recovered/Resolved]
